FAERS Safety Report 9173204 (Version 1)
Quarter: 2013Q1

REPORT INFORMATION
  Report Type: Spontaneous
  Country: CA (occurrence: CA)
  Receive Date: 20130320
  Receipt Date: 20130320
  Transmission Date: 20140127
  Serious: Yes (Hospitalization)
  Sender: FDA-Public Use
  Company Number: CA-JNJFOC-20070206211

PATIENT
  Age: 60 Year
  Sex: Male
  Weight: 76.52 kg

DRUGS (6)
  1. MOTRIN IB [Suspect]
     Route: 048
  2. MOTRIN IB [Suspect]
     Indication: TOOTHACHE
     Route: 048
     Dates: start: 20061005, end: 20061007
  3. UNSPECIFIED MEDICATION [Suspect]
     Indication: PRODUCT USED FOR UNKNOWN INDICATION
     Dosage: UNKNOWN UNITS, THREE TIMES DAILY
     Dates: start: 20060926, end: 20061007
  4. METFORMIN [Concomitant]
     Dates: start: 2000
  5. ROSIGLITAZONE [Concomitant]
     Dates: start: 200608
  6. AN UNKNOWN MEDICATION [Concomitant]

REACTIONS (1)
  - Lower gastrointestinal haemorrhage [Unknown]
